FAERS Safety Report 24774137 (Version 2)
Quarter: 2025Q2

REPORT INFORMATION
  Report Type: Spontaneous
  Country: US (occurrence: US)
  Receive Date: 20241225
  Receipt Date: 20250617
  Transmission Date: 20250717
  Serious: Yes (Hospitalization)
  Sender: SANOFI AVENTIS
  Company Number: US-SA-2024SA379964

PATIENT
  Age: 47 Year
  Sex: Female

DRUGS (31)
  1. DUPIXENT [Suspect]
     Active Substance: DUPILUMAB
     Indication: Asthma
     Dosage: 300 MG, QOW
     Route: 058
     Dates: start: 20210415
  2. ALBUTEROL [Concomitant]
     Active Substance: ALBUTEROL
  3. AMLODIPINE BESYLATE\BENAZEPRIL HYDROCHLORIDE [Concomitant]
     Active Substance: AMLODIPINE BESYLATE\BENAZEPRIL HYDROCHLORIDE
  4. AMLODIPINE [Concomitant]
     Active Substance: AMLODIPINE BESYLATE
  5. ATORVASTATIN [Concomitant]
     Active Substance: ATORVASTATIN
  6. ATORVASTATIN [Concomitant]
     Active Substance: ATORVASTATIN
  7. AZITHROMYCIN [Concomitant]
     Active Substance: AZITHROMYCIN
  8. BASAGLAR [Concomitant]
     Active Substance: INSULIN GLARGINE
  9. BENZONATATE [Concomitant]
     Active Substance: BENZONATATE
  10. BUPROPION [Concomitant]
     Active Substance: BUPROPION
  11. DICLOFENAC [Concomitant]
     Active Substance: DICLOFENAC
  12. FARXIGA [Concomitant]
     Active Substance: DAPAGLIFLOZIN PROPANEDIOL
  13. LEVOTHYROXINE [Concomitant]
     Active Substance: LEVOTHYROXINE
  14. LEVOTHYROXINE [Concomitant]
     Active Substance: LEVOTHYROXINE
  15. LEVOTHYROXINE [Concomitant]
     Active Substance: LEVOTHYROXINE
  16. LORATADINE [Concomitant]
     Active Substance: LORATADINE
  17. MONTELUKAST [Concomitant]
     Active Substance: MONTELUKAST
  18. OZEMPIC [Concomitant]
     Active Substance: SEMAGLUTIDE
  19. PREDNISONE [Concomitant]
     Active Substance: PREDNISONE
  20. SUMATRIPTAN [Concomitant]
     Active Substance: SUMATRIPTAN
  21. TRIAMCINOLONE [Concomitant]
     Active Substance: TRIAMCINOLONE
  22. VENLAFAXINE [Concomitant]
     Active Substance: VENLAFAXINE HYDROCHLORIDE
  23. VALSARTAN [Concomitant]
     Active Substance: VALSARTAN
  24. DAPAGLIFLOZIN [Concomitant]
     Active Substance: DAPAGLIFLOZIN
  25. OZEMPIC [Concomitant]
     Active Substance: SEMAGLUTIDE
  26. IRBESARTAN [Concomitant]
     Active Substance: IRBESARTAN
  27. ATORVASTATIN [Concomitant]
     Active Substance: ATORVASTATIN
  28. CHLORTHALIDONE [Concomitant]
     Active Substance: CHLORTHALIDONE
  29. METHOCARBAMOL [Concomitant]
     Active Substance: METHOCARBAMOL
  30. KERENDIA [Concomitant]
     Active Substance: FINERENONE
  31. BENZONATATE [Concomitant]
     Active Substance: BENZONATATE

REACTIONS (3)
  - Surgery [Unknown]
  - Impaired quality of life [Unknown]
  - Drug ineffective [Unknown]

NARRATIVE: CASE EVENT DATE: 20241101
